FAERS Safety Report 21994421 (Version 1)
Quarter: 2023Q1

REPORT INFORMATION
  Report Type: Spontaneous
  Country: US (occurrence: None)
  Receive Date: 20230213
  Receipt Date: 20230213
  Transmission Date: 20230418
  Serious: Yes (Other)
  Sender: FDA-Public Use
  Company Number: None

PATIENT
  Age: 85 Year
  Sex: Male
  Weight: 94.05 kg

DRUGS (9)
  1. REVLIMID [Suspect]
     Active Substance: LENALIDOMIDE
     Indication: Plasma cell myeloma
     Dosage: OTHER FREQUENCY : 21 DAYS ON, 7 OFF;?
     Route: 048
     Dates: start: 20211201
  2. ACYCLOVIR [Concomitant]
     Active Substance: ACYCLOVIR
  3. ASPIRIN [Concomitant]
     Active Substance: ASPIRIN
  4. ATORVASTATIN [Concomitant]
     Active Substance: ATORVASTATIN
  5. DEXAMETHASONE [Concomitant]
     Active Substance: DEXAMETHASONE
  6. FINASTERIDE [Concomitant]
     Active Substance: FINASTERIDE
  7. ONDANSETRON [Concomitant]
     Active Substance: ONDANSETRON
  8. TRAMADOL [Concomitant]
     Active Substance: TRAMADOL
  9. VITAMIN D2 [Concomitant]
     Active Substance: ERGOCALCIFEROL

REACTIONS (2)
  - Rash [None]
  - Rash [None]

NARRATIVE: CASE EVENT DATE: 20230118
